FAERS Safety Report 6980335-9 (Version None)
Quarter: 2010Q3

REPORT INFORMATION
  Report Type: 
  Country: None (occurrence: None)
  Receive Date: 20100908
  Receipt Date: 20100903
  Transmission Date: 20110219
  Serious: Yes (Death)
  Sender: FDA-Public Use
  Company Number: 2010SP008256

PATIENT
  Age: 73 Year
  Sex: Male
  Weight: 49 kg

DRUGS (11)
  1. REMERON [Suspect]
     Indication: DEPRESSION
     Dosage: 15 MG; QD; PO, 30 MG; QD; PO
     Route: 048
     Dates: start: 20091210, end: 20100113
  2. REMERON [Suspect]
     Indication: DEPRESSION
     Dosage: 15 MG; QD; PO, 30 MG; QD; PO
     Route: 048
     Dates: start: 20100114, end: 20100223
  3. REMERON [Suspect]
     Indication: DEPRESSION
     Dosage: 15 MG; QD; PO, 30 MG; QD; PO
     Route: 048
     Dates: start: 20100224, end: 20100228
  4. REMERON [Suspect]
     Indication: DEPRESSION
     Dosage: 15 MG; QD; PO, 30 MG; QD; PO
     Route: 048
     Dates: start: 20100312, end: 20100402
  5. DEPAS [Concomitant]
  6. MAGMITT [Concomitant]
  7. LOXONIN [Concomitant]
  8. ATINES [Concomitant]
  9. HALCION [Concomitant]
  10. DESYREL [Concomitant]
  11. GOODMIN [Concomitant]

REACTIONS (7)
  - ASPHYXIA [None]
  - COMPLETED SUICIDE [None]
  - DIZZINESS [None]
  - DYSGEUSIA [None]
  - MUSCULOSKELETAL STIFFNESS [None]
  - RESTLESSNESS [None]
  - THIRST [None]
